FAERS Safety Report 5931842-9 (Version None)
Quarter: 2008Q4

REPORT INFORMATION
  Report Type: 
  Country: None (occurrence: None)
  Receive Date: 20081027
  Receipt Date: 20081015
  Transmission Date: 20090506
  Serious: Yes (Hospitalization)
  Sender: FDA-Public Use
  Company Number: BR-PFIZER INC-2008083640

PATIENT
  Sex: Male
  Weight: 68 kg

DRUGS (9)
  1. MARAVIROC [Suspect]
     Indication: HIV TEST POSITIVE
     Route: 048
     Dates: start: 20080815
  2. SULFADIAZINE [Concomitant]
     Route: 048
     Dates: start: 19980901, end: 20081010
  3. PYRIMETHAMINE TAB [Concomitant]
     Route: 048
     Dates: start: 19980901, end: 20081010
  4. FOLINIC ACID [Concomitant]
     Route: 048
     Dates: start: 19980901, end: 20081010
  5. NISTATIN [Concomitant]
     Route: 061
     Dates: start: 20080908, end: 20081010
  6. TENOFOVIR [Concomitant]
     Route: 048
     Dates: start: 20080710
  7. LAMIVUDINE [Concomitant]
     Route: 048
     Dates: start: 20040428
  8. ATAZANAVIR SULFATE [Concomitant]
     Route: 048
     Dates: start: 20080710
  9. RITONAVIR [Concomitant]
     Route: 048
     Dates: start: 20080710

REACTIONS (1)
  - CONVULSION [None]
